FAERS Safety Report 9241986 (Version 1)
Quarter: 2013Q2

REPORT INFORMATION
  Report Type: Spontaneous
  Country: AU (occurrence: AU)
  Receive Date: 20130419
  Receipt Date: 20130419
  Transmission Date: 20140414
  Serious: Yes (Other)
  Sender: FDA-Public Use
  Company Number: AU-ROCHE-1214881

PATIENT
  Sex: Female

DRUGS (2)
  1. VALIUM [Suspect]
     Indication: PRODUCT USED FOR UNKNOWN INDICATION
     Route: 065
  2. SPORANOX [Interacting]
     Indication: PRODUCT USED FOR UNKNOWN INDICATION
     Route: 048

REACTIONS (13)
  - Blood pressure increased [Unknown]
  - Muscle spasms [Unknown]
  - Constipation [Unknown]
  - Headache [Unknown]
  - Back pain [Unknown]
  - Hearing impaired [Unknown]
  - Fatigue [Unknown]
  - Oesophageal pain [Unknown]
  - Drug interaction [Unknown]
  - Vision blurred [Unknown]
  - Muscular weakness [Unknown]
  - Hallucination [Unknown]
  - Dizziness [Unknown]
